FAERS Safety Report 8218403-6 (Version None)
Quarter: 2012Q1

REPORT INFORMATION
  Report Type: 
  Country: None (occurrence: None)
  Receive Date: 20120319
  Receipt Date: 20120312
  Transmission Date: 20120608
  Serious: Yes (Hospitalization)
  Sender: FDA-Public Use
  Company Number: IT-GLAXOSMITHKLINE-B0788766A

PATIENT
  Sex: Female

DRUGS (5)
  1. ZEFFIX [Suspect]
     Indication: HEPATITIS B
     Dosage: 100MG PER DAY
     Route: 048
     Dates: start: 20111125, end: 20120123
  2. BACTRIM [Concomitant]
     Dosage: 3TAB PER DAY
     Route: 048
     Dates: start: 20120104, end: 20120110
  3. OMEPRAZOLE [Concomitant]
  4. MABTHERA [Concomitant]
     Dosage: 610MG PER DAY
     Route: 042
     Dates: start: 20111222, end: 20111222
  5. ACYCLOVIR [Concomitant]
     Dosage: 400MG PER DAY
     Route: 048
     Dates: start: 20120104, end: 20120110

REACTIONS (3)
  - RASH ERYTHEMATOUS [None]
  - PRURITUS [None]
  - OEDEMA PERIPHERAL [None]
